FAERS Safety Report 8908982 (Version 1)
Quarter: 2012Q4

REPORT INFORMATION
  Report Type: 
  Country: AR (occurrence: AR)
  Receive Date: 20121114
  Receipt Date: 20121114
  Transmission Date: 20130627
  Serious: Yes (Other)
  Sender: FDA-Public Use
  Company Number: PHHY2012AR104739

PATIENT
  Sex: Male

DRUGS (2)
  1. DIOVAN [Suspect]
     Dosage: 160 mg
     Route: 048
  2. EXFORGE [Suspect]
     Dosage: 1 DF (160 mg vals, 10 mg amlo)
     Route: 048

REACTIONS (2)
  - Hypoacusis [Recovering/Resolving]
  - Vertigo [Recovering/Resolving]
